FAERS Safety Report 9052911 (Version 2)
Quarter: 2013Q2

REPORT INFORMATION
  Report Type: Spontaneous
  Country: JP (occurrence: JP)
  Receive Date: 20130207
  Receipt Date: 20130424
  Transmission Date: 20140414
  Serious: Yes (Hospitalization)
  Sender: FDA-Public Use
  Company Number: PHHY2013JP009410

PATIENT
  Age: 78 Year
  Sex: Male

DRUGS (9)
  1. CEFTRIAXONE SODIUM [Suspect]
     Indication: PNEUMONIA
     Dosage: 2 G, DAILY
     Dates: start: 20130106, end: 20130111
  2. MINOPEN [Suspect]
     Indication: PNEUMONIA
     Dosage: 200 MG, DAILY
     Dates: start: 20130106, end: 20130111
  3. ZOSYN [Concomitant]
     Indication: PNEUMONIA
     Dosage: 18 G, UNK
     Route: 042
     Dates: start: 20130106, end: 20130110
  4. ALMYLAR [Concomitant]
     Dosage: 50 MG, UNK
     Route: 048
  5. MAIBASTAN [Concomitant]
     Indication: DYSLIPIDAEMIA
     Dosage: 10 MG, UNK
     Route: 048
  6. BAYASPIRIN [Concomitant]
     Dosage: 100 MG, UNK
     Route: 048
  7. EQUA [Concomitant]
     Indication: DIABETES MELLITUS
     Dosage: 50 MG, UNK
     Route: 048
  8. MEDET [Concomitant]
     Indication: DIABETES MELLITUS
     Dosage: 250 MG, UNK
     Route: 048
  9. GLIMEPIRIDE [Concomitant]
     Indication: DIABETES MELLITUS
     Dosage: 1 MG, UNK
     Route: 048

REACTIONS (1)
  - Interstitial lung disease [Recovering/Resolving]
